FAERS Safety Report 5775130-2 (Version None)
Quarter: 2008Q2

REPORT INFORMATION
  Report Type: 
  Country: None (occurrence: None)
  Receive Date: 20080616
  Receipt Date: 20080616
  Transmission Date: 20081010
  Serious: Yes (Hospitalization)
  Sender: FDA-Public Use
  Company Number: None

PATIENT
  Age: 72 Year
  Sex: Female
  Weight: 58.9676 kg

DRUGS (1)
  1. DIGITEK 0.125 MG MYLAN [Suspect]
     Indication: ATRIAL FIBRILLATION
     Dates: start: 20080324, end: 20080331

REACTIONS (6)
  - ALOPECIA [None]
  - CONFUSIONAL STATE [None]
  - DIZZINESS [None]
  - DYSSTASIA [None]
  - HEART RATE DECREASED [None]
  - MYOCARDIAL INFARCTION [None]
